FAERS Safety Report 4298458-4 (Version None)
Quarter: 2004Q1

REPORT INFORMATION
  Report Type: 
  Country: None (occurrence: None)
  Receive Date: 20040218
  Receipt Date: 20030818
  Transmission Date: 20041129
  Serious: No
  Sender: FDA-Public Use
  Company Number: US-BRISTOL-MYERS SQUIBB COMPANY-12358925

PATIENT
  Age: 27 Year
  Sex: Female
  Weight: 61 kg

DRUGS (1)
  1. STADOL [Suspect]
     Indication: HEADACHE
     Dosage: 1 SPRAY TO 1 NOSTRIL ON 15-AUG-03;1 SPRAY TO 1 ALTERNATING NOSTRIL 2X 4-6 HOURS APART ON 18-AUG
     Route: 045

REACTIONS (1)
  - DRUG INEFFECTIVE [None]
